FAERS Safety Report 10245008 (Version 1)
Quarter: 2014Q2

REPORT INFORMATION
  Report Type: Spontaneous
  Country: US (occurrence: US)
  Receive Date: 20140618
  Receipt Date: 20140618
  Transmission Date: 20141212
  Serious: No
  Sender: FDA-Public Use
  Company Number: US-PFIZER INC-2014166837

PATIENT
  Age: 71 Year
  Sex: Female

DRUGS (4)
  1. DILANTIN [Suspect]
     Indication: HEADACHE
     Dosage: 100 MG, 3X/DAY
     Route: 048
     Dates: start: 1977
  2. DILANTIN [Suspect]
     Indication: VERTIGO
  3. STRATTERA [Concomitant]
     Indication: ATTENTION DEFICIT/HYPERACTIVITY DISORDER
     Dosage: 60 MG, UNK
  4. THYROXIN [Concomitant]
     Indication: AUTOIMMUNE THYROIDITIS
     Dosage: 15 UG, UNK

REACTIONS (1)
  - Depression [Not Recovered/Not Resolved]
